FAERS Safety Report 4705364-7 (Version None)
Quarter: 2005Q3

REPORT INFORMATION
  Report Type: 
  Country: None (occurrence: None)
  Receive Date: 20050701
  Receipt Date: 20050621
  Transmission Date: 20060218
  Serious: Yes (Other)
  Sender: FDA-Public Use
  Company Number: GB-JNJFOC-20050607423

PATIENT
  Age: 82 Year
  Sex: Male

DRUGS (6)
  1. REMINYL [Suspect]
     Indication: DRUG USE FOR UNKNOWN INDICATION
     Route: 065
     Dates: start: 20040101, end: 20050501
  2. FOLIC ACID [Concomitant]
  3. ACETYLSALICYLIC ACID SRT [Concomitant]
  4. ISOSORBIDE MONONITRATE [Concomitant]
  5. ATORVASTATIN CALCIUM [Concomitant]
  6. LERCANIDIPINE [Concomitant]

REACTIONS (2)
  - GAMMA-GLUTAMYLTRANSFERASE ABNORMAL [None]
  - LIVER FUNCTION TEST ABNORMAL [None]
